FAERS Safety Report 6239796-5 (Version None)
Quarter: 2009Q2

REPORT INFORMATION
  Report Type: 
  Country: None (occurrence: None)
  Receive Date: 20090623
  Receipt Date: 20090616
  Transmission Date: 20091009
  Serious: Yes (Life-Threatening, Hospitalization, Other)
  Sender: FDA-Public Use
  Company Number: CA-ASTRAZENECA-2009UW12422

PATIENT
  Age: 72 Year
  Sex: Female

DRUGS (3)
  1. ATACAND [Suspect]
     Indication: HYPERTENSION
     Route: 048
     Dates: start: 20081112, end: 20090507
  2. ATACAND [Suspect]
     Route: 048
     Dates: end: 20080101
  3. TRANDATE [Concomitant]
     Indication: HYPERTENSION
     Route: 048
     Dates: start: 20081222, end: 20090507

REACTIONS (3)
  - BRADYCARDIA [None]
  - HYPERGLYCAEMIA [None]
  - HYPERKALAEMIA [None]
